FAERS Safety Report 8820131 (Version 2)
Quarter: 2015Q2

REPORT INFORMATION
  Report Type: Report from Study
  Country: US (occurrence: US)
  Receive Date: 20121001
  Receipt Date: 20150504
  Transmission Date: 20150821
  Serious: Yes (Death)
  Sender: FDA-Public Use
  Company Number: US-ROCHE-1130888

PATIENT
  Sex: Male

DRUGS (38)
  1. RITUXAN [Suspect]
     Active Substance: RITUXIMAB
     Indication: OFF LABEL USE
  2. MAGNESIUM SULFATE. [Concomitant]
     Active Substance: MAGNESIUM SULFATE
     Route: 042
  3. MAGNESIUM SULFATE. [Concomitant]
     Active Substance: MAGNESIUM SULFATE
     Route: 042
  4. IMMUNOGLOBULIN [Concomitant]
     Active Substance: HUMAN IMMUNOGLOBULIN G
     Route: 042
  5. MEDROL [Concomitant]
     Active Substance: METHYLPREDNISOLONE
     Route: 042
  6. PREVACID [Concomitant]
     Active Substance: LANSOPRAZOLE
     Route: 042
  7. VALACYCLOVIR [Concomitant]
     Active Substance: VALACYCLOVIR HYDROCHLORIDE
  8. ACYCLOVIR. [Concomitant]
     Active Substance: ACYCLOVIR
     Route: 042
  9. BACTRIM [Concomitant]
     Active Substance: SULFAMETHOXAZOLE\TRIMETHOPRIM
     Route: 065
  10. DECADRON [Concomitant]
     Active Substance: DEXAMETHASONE
     Route: 042
  11. AREDIA [Concomitant]
     Active Substance: PAMIDRONATE DISODIUM
     Route: 042
  12. DIFLUCAN [Concomitant]
     Active Substance: FLUCONAZOLE
  13. NALTREXONE [Concomitant]
     Active Substance: NALTREXONE
     Route: 065
  14. VALTREX [Concomitant]
     Active Substance: VALACYCLOVIR HYDROCHLORIDE
  15. ITRACONAZOLE. [Concomitant]
     Active Substance: ITRACONAZOLE
     Dosage: EVERY ALTERNATE DAYS
     Route: 065
  16. RITUXAN [Suspect]
     Active Substance: RITUXIMAB
     Indication: AUTOIMMUNE HAEMOLYTIC ANAEMIA
     Route: 042
  17. DEXAMETHASONE. [Concomitant]
     Active Substance: DEXAMETHASONE
     Route: 042
  18. TYLENOL [Concomitant]
     Active Substance: ACETAMINOPHEN
     Route: 048
  19. BENADRYL [Concomitant]
     Active Substance: DIPHENHYDRAMINE HYDROCHLORIDE
     Route: 048
  20. CALCIUM GLUCONATE. [Concomitant]
     Active Substance: CALCIUM GLUCONATE
     Route: 042
  21. GUAIFENESIN. [Concomitant]
     Active Substance: GUAIFENESIN
  22. DILAUDID [Concomitant]
     Active Substance: HYDROMORPHONE HYDROCHLORIDE
     Route: 042
  23. MEDROL [Concomitant]
     Active Substance: METHYLPREDNISOLONE
     Route: 042
  24. MAGINEX [Concomitant]
     Indication: DIARRHOEA
     Route: 042
  25. FLUCONAZOLE. [Concomitant]
     Active Substance: FLUCONAZOLE
  26. PSEUDOEPHEDRINE [Concomitant]
     Active Substance: PSEUDOEPHEDRINE
  27. SOLU-MEDROL [Concomitant]
     Active Substance: METHYLPREDNISOLONE SODIUM SUCCINATE
  28. MAGINEX [Concomitant]
     Route: 042
  29. MAGINEX [Concomitant]
     Route: 042
  30. SPORANOX [Concomitant]
     Active Substance: ITRACONAZOLE\SODIUM CHLORIDE
  31. TUMS [Concomitant]
     Active Substance: CALCIUM CARBONATE
  32. OXYCODONE [Concomitant]
     Active Substance: OXYCODONE
     Route: 048
  33. CLARITIN [Concomitant]
     Active Substance: LORATADINE
  34. OMEPRAZOLE. [Concomitant]
     Active Substance: OMEPRAZOLE
  35. TACROLIMUS. [Concomitant]
     Active Substance: TACROLIMUS
  36. ZOMETA [Concomitant]
     Active Substance: ZOLEDRONIC ACID
     Route: 042
  37. POTASSIUM CHLORIDE. [Concomitant]
     Active Substance: POTASSIUM CHLORIDE
     Route: 042
  38. POTASSIUM CHLORIDE. [Concomitant]
     Active Substance: POTASSIUM CHLORIDE
     Route: 042

REACTIONS (29)
  - Ill-defined disorder [Unknown]
  - Rhinitis allergic [Unknown]
  - Cushingoid [Recovered/Resolved]
  - Thrombocytopenia [Unknown]
  - Nausea [Recovered/Resolved]
  - Malaise [Unknown]
  - Pneumonia [Unknown]
  - Cellulitis [Unknown]
  - Breath sounds abnormal [Unknown]
  - Fatigue [Unknown]
  - Erythema [Unknown]
  - Myalgia [Unknown]
  - Leukopenia [Unknown]
  - Death [Fatal]
  - Wheezing [Unknown]
  - Rales [Unknown]
  - Back pain [Unknown]
  - Atelectasis [Unknown]
  - Dyspepsia [Recovered/Resolved]
  - Vomiting [Recovered/Resolved]
  - Sinus operation [Unknown]
  - Peroneal nerve palsy [Unknown]
  - Diarrhoea [Unknown]
  - Hypokalaemia [Unknown]
  - Skin disorder [Unknown]
  - Tachycardia [Unknown]
  - Hypomagnesaemia [Unknown]
  - Rash [Recovered/Resolved]
  - Skin necrosis [Unknown]
